FAERS Safety Report 22071640 (Version 6)
Quarter: 2023Q4

REPORT INFORMATION
  Report Type: Spontaneous
  Country: US (occurrence: US)
  Receive Date: 20230307
  Receipt Date: 20231010
  Transmission Date: 20240110
  Serious: No
  Sender: FDA-Public Use
  Company Number: US-PFIZER INC-PV202300043734

PATIENT
  Age: 45 Year
  Sex: Male

DRUGS (1)
  1. BOSULIF [Suspect]
     Active Substance: BOSUTINIB MONOHYDRATE
     Dosage: 500 MG
     Dates: end: 202304

REACTIONS (5)
  - Illness [Unknown]
  - Nausea [Unknown]
  - Diarrhoea [Unknown]
  - Peripheral swelling [Unknown]
  - Insomnia [Recovering/Resolving]
